FAERS Safety Report 8826740 (Version 2)
Quarter: 2012Q4

REPORT INFORMATION
  Report Type: 
  Country: US (occurrence: US)
  Receive Date: 20121005
  Receipt Date: 20121207
  Transmission Date: 20130627
  Serious: Yes (Hospitalization)
  Sender: FDA-Public Use
  Company Number: US-GLAXOSMITHKLINE-A0996194A

PATIENT
  Sex: Female

DRUGS (5)
  1. ADVAIR [Suspect]
     Indication: ASTHMA
     Route: 055
  2. ALBUTEROL [Suspect]
     Indication: PRODUCT USED FOR UNKNOWN INDICATION
     Route: 055
  3. VENTOLIN [Suspect]
     Indication: PRODUCT USED FOR UNKNOWN INDICATION
     Route: 055
  4. PREDNISONE [Concomitant]
  5. PULMICORT [Concomitant]

REACTIONS (8)
  - Alternaria infection [Unknown]
  - Sinusitis [Unknown]
  - Sinus perforation [Unknown]
  - Arterial disorder [Unknown]
  - Haemorrhage [Unknown]
  - Upper respiratory tract infection bacterial [Unknown]
  - Respiratory tract infection fungal [Unknown]
  - Staphylococcal infection [Unknown]
